FAERS Safety Report 23437264 (Version 1)
Quarter: 2024Q1

REPORT INFORMATION
  Report Type: Spontaneous
  Country: IT (occurrence: IT)
  Receive Date: 20240124
  Receipt Date: 20240124
  Transmission Date: 20240410
  Serious: Yes (Hospitalization)
  Sender: FDA-Public Use
  Company Number: None

PATIENT
  Age: 77 Year
  Sex: Female
  Weight: 70 kg

DRUGS (1)
  1. IBUPROFEN [Suspect]
     Active Substance: IBUPROFEN
     Indication: COVID-19
     Dosage: QD (SELF-ADMINISTRATION 1 PER DAY)
     Route: 048
     Dates: start: 20240101, end: 20240109

REACTIONS (4)
  - Erosive oesophagitis [Recovering/Resolving]
  - Erosive duodenitis [Recovering/Resolving]
  - Gastric ulcer [Recovering/Resolving]
  - Intentional product misuse [Unknown]

NARRATIVE: CASE EVENT DATE: 20240101
